FAERS Safety Report 5948914-5 (Version None)
Quarter: 2008Q4

REPORT INFORMATION
  Report Type: 
  Country: None (occurrence: None)
  Receive Date: 20081111
  Receipt Date: 20081030
  Transmission Date: 20090506
  Serious: Yes (Other)
  Sender: FDA-Public Use
  Company Number: GB-ROCHE-594791

PATIENT
  Age: 48 Year
  Sex: Male

DRUGS (1)
  1. PEGASYS [Suspect]
     Indication: HEPATITIS C
     Route: 065
     Dates: start: 20080925

REACTIONS (5)
  - DRY MOUTH [None]
  - DYSPHAGIA [None]
  - GLOSSODYNIA [None]
  - TONGUE NEOPLASM [None]
  - WEIGHT DECREASED [None]
